FAERS Safety Report 17105668 (Version 2)
Quarter: 2020Q2

REPORT INFORMATION
  Report Type: Spontaneous
  Country: US (occurrence: US)
  Receive Date: 20191203
  Receipt Date: 20200506
  Transmission Date: 20200713
  Serious: Yes (Hospitalization)
  Sender: FDA-Public Use
  Company Number: US-BAYER-2019-078270

PATIENT
  Age: 43 Year
  Sex: Female

DRUGS (5)
  1. XARELTO [Suspect]
     Active Substance: RIVAROXABAN
     Indication: ATRIAL FIBRILLATION
  2. XARELTO [Suspect]
     Active Substance: RIVAROXABAN
     Indication: DEEP VEIN THROMBOSIS
  3. XARELTO [Suspect]
     Active Substance: RIVAROXABAN
     Indication: CEREBROVASCULAR ACCIDENT PROPHYLAXIS
     Dosage: 10 MG, QD
     Route: 048
     Dates: start: 20121117, end: 20181105
  4. ASPIRIN (CARDIO) [Suspect]
     Active Substance: ASPIRIN
     Dosage: 325 MG, QD
     Route: 048
  5. XARELTO [Suspect]
     Active Substance: RIVAROXABAN
     Indication: THROMBOSIS PROPHYLAXIS

REACTIONS (3)
  - Haemorrhage [Unknown]
  - Respiratory failure [Unknown]
  - Haematoma [Unknown]

NARRATIVE: CASE EVENT DATE: 20180327
